FAERS Safety Report 5809413-4 (Version None)
Quarter: 2008Q3

REPORT INFORMATION
  Report Type: 
  Country: None (occurrence: None)
  Receive Date: 20080714
  Receipt Date: 20080703
  Transmission Date: 20090109
  Serious: Yes (Life-Threatening, Hospitalization)
  Sender: FDA-Public Use
  Company Number: BR-ELI_LILLY_AND_COMPANY-BR200807000959

PATIENT
  Sex: Male
  Weight: 45 kg

DRUGS (6)
  1. PEMETREXED [Suspect]
     Indication: NON-SMALL CELL LUNG CANCER
     Dosage: 500 MG/M2, OTHER
     Route: 042
     Dates: start: 20080610
  2. CARBOPLATIN [Suspect]
     Indication: NON-SMALL CELL LUNG CANCER
     Dosage: UNK, OTHER
     Route: 042
     Dates: start: 20080610
  3. FOLIC ACID [Concomitant]
     Indication: SUPPLEMENTATION THERAPY
     Dosage: 400 MG, DAILY (1/D)
     Route: 048
     Dates: start: 20080515
  4. VITAMIN B-12 [Concomitant]
     Indication: SUPPLEMENTATION THERAPY
     Dosage: 1000 MG, UNKNOWN
     Route: 030
     Dates: start: 20080515, end: 20080515
  5. DEXAMETHASONE [Concomitant]
     Indication: SUPPLEMENTATION THERAPY
     Dosage: 4 MG, DAILY (1/D)
     Route: 048
     Dates: start: 20080609, end: 20080611
  6. LEVOFLOXACIN [Concomitant]
     Indication: PNEUMONITIS
     Dosage: 500 MG, UNKNOWN
     Route: 048
     Dates: start: 20080617, end: 20080623

REACTIONS (3)
  - CARDIAC FAILURE HIGH OUTPUT [None]
  - NEUTROPENIA [None]
  - THROMBOCYTOPENIA [None]
